FAERS Safety Report 13777025 (Version 1)
Quarter: 2017Q3

REPORT INFORMATION
  Report Type: Spontaneous
  Country: FR (occurrence: FR)
  Receive Date: 20170721
  Receipt Date: 20170721
  Transmission Date: 20171127
  Serious: Yes (Other)
  Sender: FDA-Public Use
  Company Number: FR-BAYER-2017-134320

PATIENT
  Age: 43 Year
  Sex: Female

DRUGS (1)
  1. MIRENA [Suspect]
     Active Substance: LEVONORGESTREL
     Indication: CONTRACEPTION
     Dosage: 20 MCG/24HR, CONT
     Route: 015
     Dates: start: 20050701, end: 20170705

REACTIONS (6)
  - Stress [Recovered/Resolved]
  - Mood swings [Recovered/Resolved]
  - Anxiety [Recovered/Resolved]
  - Restless legs syndrome [Recovered/Resolved]
  - Gastrointestinal disorder [Recovered/Resolved]
  - Headache [Recovered/Resolved]
